FAERS Safety Report 25795507 (Version 1)
Quarter: 2025Q3

REPORT INFORMATION
  Report Type: Report from Study
  Country: CA (occurrence: CA)
  Receive Date: 20250912
  Receipt Date: 20250912
  Transmission Date: 20251021
  Serious: Yes (Other)
  Sender: PFIZER
  Company Number: CA-PFIZER INC-202400022602

PATIENT
  Age: 47 Year
  Sex: Female

DRUGS (3)
  1. METHOTREXATE SODIUM [Suspect]
     Active Substance: METHOTREXATE SODIUM
     Route: 042
  2. METHOTREXATE SODIUM [Suspect]
     Active Substance: METHOTREXATE SODIUM
     Route: 048
  3. ERELZI [Suspect]
     Active Substance: ETANERCEPT-SZZS
     Indication: Rheumatoid arthritis
     Dosage: 50 MG, MONTHLY
     Route: 058

REACTIONS (6)
  - Drug ineffective [Recovering/Resolving]
  - Dysgeusia [Recovering/Resolving]
  - Inappropriate schedule of product administration [Recovering/Resolving]
  - Off label use [Recovering/Resolving]
  - Rheumatoid arthritis [Recovering/Resolving]
  - Needle issue [Unknown]
